FAERS Safety Report 9973622 (Version 1)
Quarter: 2014Q1

REPORT INFORMATION
  Report Type: Spontaneous
  Country: US (occurrence: US)
  Receive Date: 20140306
  Receipt Date: 20140306
  Transmission Date: 20141002
  Serious: No
  Sender: FDA-Public Use
  Company Number: US-BAYER-2014-034975

PATIENT
  Age: 75 Year
  Sex: Male
  Weight: 79 kg

DRUGS (4)
  1. ALEVE CAPLET [Suspect]
     Indication: ANALGESIC THERAPY
     Dosage: UNK
     Route: 048
     Dates: start: 20140303
  2. FLOMAX (MORNIFLUMATE) [Concomitant]
  3. LITHIUM [Concomitant]
  4. METFORMIN [Concomitant]

REACTIONS (1)
  - Extra dose administered [None]
